FAERS Safety Report 6423853-4 (Version None)
Quarter: 2009Q4

REPORT INFORMATION
  Report Type: 
  Country: None (occurrence: None)
  Receive Date: 20091028
  Receipt Date: 20091021
  Transmission Date: 20100525
  Serious: Yes (Other)
  Sender: FDA-Public Use
  Company Number: 2009SP031781

PATIENT
  Age: 32 Year
  Sex: Female
  Weight: 47 kg

DRUGS (1)
  1. DESLORATADINE [Suspect]
     Indication: RHINITIS ALLERGIC
     Dosage: 5 MG;QD;PO
     Route: 048

REACTIONS (4)
  - DYSPHONIA [None]
  - EATING DISORDER [None]
  - FOREIGN BODY [None]
  - OESOPHAGEAL ULCER [None]
